FAERS Safety Report 8392593-7 (Version None)
Quarter: 2012Q2

REPORT INFORMATION
  Report Type: 
  Country: None (occurrence: None)
  Receive Date: 20120529
  Receipt Date: 20120521
  Transmission Date: 20120825
  Serious: Yes (Hospitalization, Other)
  Sender: FDA-Public Use
  Company Number: CH-ABBOTT-12P-151-0934066-00

PATIENT
  Age: 80 Year
  Sex: Female

DRUGS (8)
  1. ACETALGINE [Concomitant]
     Indication: PRODUCT USED FOR UNKNOWN INDICATION
  2. NASONEX [Concomitant]
     Indication: PRODUCT USED FOR UNKNOWN INDICATION
     Route: 045
  3. DEPAKENE [Interacting]
     Indication: EPILEPSY
  4. FOSAMAX [Concomitant]
     Indication: PRODUCT USED FOR UNKNOWN INDICATION
     Route: 048
  5. SEROQUEL [Interacting]
     Indication: SCHIZOPHRENIA
     Route: 048
  6. CALCIUM +D3 [Concomitant]
     Indication: PRODUCT USED FOR UNKNOWN INDICATION
  7. EFFEXOR [Suspect]
     Indication: PRODUCT USED FOR UNKNOWN INDICATION
  8. CODEINE SULFATE [Interacting]
     Indication: COUGH
     Route: 048
     Dates: start: 20120402, end: 20120406

REACTIONS (9)
  - DRUG INTERACTION [None]
  - TOXICITY TO VARIOUS AGENTS [None]
  - BRADYPNOEA [None]
  - TACHYCARDIA [None]
  - PNEUMONIA [None]
  - RENAL DISORDER [None]
  - LOSS OF CONSCIOUSNESS [None]
  - DEPRESSED LEVEL OF CONSCIOUSNESS [None]
  - HYPOTENSION [None]
